FAERS Safety Report 9718209 (Version 3)
Quarter: 2014Q1

REPORT INFORMATION
  Report Type: Spontaneous
  Country: IT (occurrence: IT)
  Receive Date: 20131127
  Receipt Date: 20140205
  Transmission Date: 20141002
  Serious: Yes (Death, Other)
  Sender: FDA-Public Use
  Company Number: IT-ELI_LILLY_AND_COMPANY-IT201311007287

PATIENT
  Age: 65 Year
  Sex: Male
  Weight: 50 kg

DRUGS (8)
  1. ALIMTA [Suspect]
     Indication: LUNG ADENOCARCINOMA STAGE IV
     Dosage: 767.5 MG, CYCLICAL
     Route: 042
     Dates: start: 20130806, end: 20130827
  2. CISPLATIN [Suspect]
     Indication: LUNG ADENOCARCINOMA STAGE IV
     Dosage: 126 MG, CYCLICAL
     Route: 042
     Dates: start: 20130806, end: 20130828
  3. MORPHINE SULFATE [Concomitant]
     Indication: METASTATIC PAIN
     Dosage: 40 MG, UNK
     Dates: start: 20130729, end: 20130906
  4. ALOXI [Concomitant]
     Indication: PROPHYLAXIS OF NAUSEA AND VOMITING
     Dosage: 250 UG, UNK
     Route: 042
     Dates: start: 20130806, end: 20130827
  5. DEXAMETHASONE PHOSPHATE [Concomitant]
     Indication: PROPHYLAXIS OF NAUSEA AND VOMITING
     Dosage: 20 MG, UNK
     Route: 042
     Dates: start: 20130806, end: 20130828
  6. EUTIROX [Concomitant]
     Indication: HYPOTHYROIDISM
     Dosage: 50 UG, UNK
     Route: 048
     Dates: start: 20130729, end: 20130906
  7. DELTACORTENE [Concomitant]
     Indication: PROPHYLAXIS OF NAUSEA AND VOMITING
     Dosage: 25 MG, UNK
     Route: 048
     Dates: start: 20130802, end: 20130906
  8. TATIONIL [Concomitant]
     Dosage: 600 MG, UNK
     Dates: start: 20130806, end: 20130828

REACTIONS (10)
  - Septic shock [Fatal]
  - Pneumonia [Fatal]
  - Bone marrow toxicity [Fatal]
  - Pneumonitis [Unknown]
  - Dysphagia [Unknown]
  - Discomfort [Unknown]
  - Malaise [Unknown]
  - Leukopenia [Unknown]
  - Thrombocytopenia [Unknown]
  - Cardio-respiratory arrest [Fatal]
